FAERS Safety Report 24718553 (Version 1)
Quarter: 2024Q4

REPORT INFORMATION
  Report Type: Spontaneous
  Country: US (occurrence: None)
  Receive Date: 20241210
  Receipt Date: 20241210
  Transmission Date: 20250114
  Serious: Yes (Death)
  Sender: Public
  Company Number: None

PATIENT
  Age: 71 Year
  Sex: Male
  Weight: 105 kg

DRUGS (3)
  1. BARICITINIB [Suspect]
     Active Substance: BARICITINIB
     Dosage: FREQUENCY : DAILY;?
     Route: 048
     Dates: start: 20220116, end: 20220124
  2. REMDESIVIR [Suspect]
     Active Substance: REMDESIVIR
  3. DEXAMETHASONE [Suspect]
     Active Substance: DEXAMETHASONE

REACTIONS (1)
  - Death [None]

NARRATIVE: CASE EVENT DATE: 20220125
